FAERS Safety Report 8168998-6 (Version None)
Quarter: 2012Q1

REPORT INFORMATION
  Report Type: 
  Country: None (occurrence: None)
  Receive Date: 20120227
  Receipt Date: 20120217
  Transmission Date: 20120608
  Serious: Yes (Hospitalization, Other)
  Sender: FDA-Public Use
  Company Number: PHHY2012JP014170

PATIENT
  Age: 71 Year
  Sex: Male

DRUGS (3)
  1. PHENOBARBITAL TAB [Suspect]
  2. AMIODARONE HCL [Suspect]
     Dosage: 4 G, UNK
  3. AMIODARONE HCL [Suspect]
     Dosage: 11.4 G, UNK

REACTIONS (3)
  - ELECTROCARDIOGRAM QT PROLONGED [None]
  - INTENTIONAL OVERDOSE [None]
  - SUICIDE ATTEMPT [None]
